FAERS Safety Report 11472464 (Version 1)
Quarter: 2015Q3

REPORT INFORMATION
  Report Type: Spontaneous
  Country: US (occurrence: US)
  Receive Date: 20150908
  Receipt Date: 20150908
  Transmission Date: 20151125
  Serious: No
  Sender: FDA-Public Use
  Company Number: ALCN2015US005621

PATIENT
  Age: 68 Year
  Sex: Female
  Weight: 74.83 kg

DRUGS (1)
  1. TETRACAINE STERI-UNITS [Suspect]
     Active Substance: TETRACAINE\TETRACAINE HYDROCHLORIDE
     Indication: PRODUCT USED FOR UNKNOWN INDICATION

REACTIONS (1)
  - Hypersensitivity [Unknown]
